FAERS Safety Report 4617922-9 (Version None)
Quarter: 2005Q1

REPORT INFORMATION
  Report Type: 
  Country: None (occurrence: None)
  Receive Date: 20050322
  Receipt Date: 20050309
  Transmission Date: 20050727
  Serious: Yes (Hospitalization)
  Sender: FDA-Public Use
  Company Number: 05-146

PATIENT
  Age: 70 Year
  Sex: Male

DRUGS (2)
  1. IBUPROFEN [Suspect]
     Indication: BACK PAIN
     Dosage: 1800 MG
  2. TORSEMIDE [Suspect]
     Indication: HYPERTENSION

REACTIONS (5)
  - CARDIAC FAILURE [None]
  - HEART RATE INCREASED [None]
  - HYPERTENSIVE EMERGENCY [None]
  - OXYGEN SATURATION DECREASED [None]
  - PULMONARY OEDEMA [None]
